APPROVED DRUG PRODUCT: MYCO-TRIACET II
Active Ingredient: NYSTATIN; TRIAMCINOLONE ACETONIDE
Strength: 100,000 UNITS/GM;0.1%
Dosage Form/Route: OINTMENT;TOPICAL
Application: A062045 | Product #002
Applicant: TEVA PHARMACEUTICALS USA INC
Approved: Nov 26, 1985 | RLD: No | RS: No | Type: DISCN